FAERS Safety Report 7679564-0 (Version None)
Quarter: 2011Q3

REPORT INFORMATION
  Report Type: 
  Country: None (occurrence: None)
  Receive Date: 20110812
  Receipt Date: 20110809
  Transmission Date: 20111222
  Serious: Yes (Hospitalization)
  Sender: FDA-Public Use
  Company Number: CHPA2011US10603

PATIENT
  Age: 34 Year
  Sex: Female

DRUGS (1)
  1. BENEFIBER PLUS HEART HEALTH [Suspect]
     Indication: BLOOD CHOLESTEROL INCREASED
     Dosage: 2 TSP, TID
     Route: 048
     Dates: start: 20110101

REACTIONS (3)
  - APPENDICECTOMY [None]
  - THERAPEUTIC RESPONSE UNEXPECTED [None]
  - OFF LABEL USE [None]
